FAERS Safety Report 23523590 (Version 3)
Quarter: 2025Q3

REPORT INFORMATION
  Report Type: Spontaneous
  Country: ZA (occurrence: ZA)
  Receive Date: 20240214
  Receipt Date: 20250905
  Transmission Date: 20251021
  Serious: Yes (Other)
  Sender: PFIZER
  Company Number: ZA-PFIZER INC-PV202400020202

PATIENT
  Age: 21 Year
  Sex: Male

DRUGS (4)
  1. METHOTREXATE SODIUM [Suspect]
     Active Substance: METHOTREXATE SODIUM
     Indication: Juvenile idiopathic arthritis
     Dosage: 15 MG, WEEKLY
     Route: 058
     Dates: start: 202309
  2. SULFASALAZINE [Suspect]
     Active Substance: SULFASALAZINE
     Indication: Juvenile idiopathic arthritis
     Dosage: 1 G, 2X/DAY
     Route: 048
     Dates: start: 202310, end: 202405
  3. ETORICOXIB [Concomitant]
     Active Substance: ETORICOXIB
     Indication: Juvenile idiopathic arthritis
     Dosage: 60 MG, DAILY
     Dates: start: 202401, end: 202405
  4. DEPO-MEDROL [Concomitant]
     Active Substance: METHYLPREDNISOLONE ACETATE
     Indication: Juvenile idiopathic arthritis
     Route: 014
     Dates: start: 202310, end: 202311

REACTIONS (6)
  - Latent tuberculosis [Unknown]
  - Synovitis [Unknown]
  - Tenosynovitis [Unknown]
  - Joint effusion [Unknown]
  - Drug ineffective for unapproved indication [Unknown]
  - Off label use [Unknown]

NARRATIVE: CASE EVENT DATE: 20231201
